FAERS Safety Report 4803893-9 (Version None)
Quarter: 2005Q3

REPORT INFORMATION
  Report Type: 
  Country: None (occurrence: None)
  Receive Date: 20050920
  Receipt Date: 20050701
  Transmission Date: 20060218
  Serious: No
  Sender: FDA-Public Use
  Company Number: US-YAMANOUCHI-YPA20050343

PATIENT
  Age: 62 Year
  Sex: Male
  Weight: 77.1115 kg

DRUGS (8)
  1. VESICARE [Suspect]
     Indication: HYPERTONIC BLADDER
     Dosage: 5 MG QD PO
     Route: 048
     Dates: start: 20050101
  2. GLUCOPHAGE [Concomitant]
  3. GLUCOTROL XL [Concomitant]
  4. ASTELIN [Concomitant]
  5. ALLEGRA [Concomitant]
  6. LIPITOR [Concomitant]
  7. ACIPHEX [Concomitant]
  8. COLAZAL [Concomitant]

REACTIONS (1)
  - DRUG INEFFECTIVE [None]
